FAERS Safety Report 7421276-2 (Version None)
Quarter: 2011Q2

REPORT INFORMATION
  Report Type: 
  Country: None (occurrence: None)
  Receive Date: 20110418
  Receipt Date: 20110411
  Transmission Date: 20111010
  Serious: Yes (Disabling)
  Sender: FDA-Public Use
  Company Number: AU-MERCK-1104USA01102

PATIENT
  Sex: Female
  Weight: 90 kg

DRUGS (1)
  1. JANUMET [Suspect]
     Route: 048
     Dates: start: 20101001, end: 20110201

REACTIONS (4)
  - ANXIETY [None]
  - FATIGUE [None]
  - SUICIDAL IDEATION [None]
  - DEPRESSION [None]
